FAERS Safety Report 9367506 (Version 1)
Quarter: 2013Q2

REPORT INFORMATION
  Report Type: Spontaneous
  Country: US (occurrence: US)
  Receive Date: 20130625
  Receipt Date: 20130625
  Transmission Date: 20140414
  Serious: No
  Sender: FDA-Public Use
  Company Number: US-ASTELLAS-2012US007673

PATIENT
  Age: 58 Year
  Sex: Female

DRUGS (1)
  1. VESICARE [Suspect]
     Indication: BLADDER SPASM
     Dosage: 5 MG, UNKNOWN/D
     Route: 048
     Dates: start: 20120829

REACTIONS (5)
  - Off label use [Unknown]
  - Constipation [Unknown]
  - Dyspepsia [Unknown]
  - Dry mouth [Unknown]
  - Dizziness [Unknown]
